FAERS Safety Report 18340802 (Version 1)
Quarter: 2020Q4

REPORT INFORMATION
  Report Type: Spontaneous
  Country: SE (occurrence: SE)
  Receive Date: 20201003
  Receipt Date: 20201003
  Transmission Date: 20210113
  Serious: Yes (Hospitalization)
  Sender: FDA-Public Use
  Company Number: SE-SUN PHARMACEUTICAL INDUSTRIES LTD-2020RR-262653

PATIENT
  Age: 36 Year
  Sex: Male

DRUGS (2)
  1. THERALEN [Suspect]
     Active Substance: TRIMEPRAZINE
     Indication: PRODUCT USED FOR UNKNOWN INDICATION
     Dosage: UNK
     Route: 065
  2. SERTRALINE [Suspect]
     Active Substance: SERTRALINE HYDROCHLORIDE
     Indication: PRODUCT USED FOR UNKNOWN INDICATION
     Dosage: UNK
     Route: 065

REACTIONS (5)
  - Intentional overdose [Unknown]
  - Toxicity to various agents [Unknown]
  - Intentional self-injury [Unknown]
  - Depressed level of consciousness [Unknown]
  - Electrocardiogram QT prolonged [Unknown]

NARRATIVE: CASE EVENT DATE: 20200830
